FAERS Safety Report 6653285-5 (Version None)
Quarter: 2010Q1

REPORT INFORMATION
  Report Type: 
  Country: None (occurrence: None)
  Receive Date: 20100326
  Receipt Date: 20100316
  Transmission Date: 20100710
  Serious: Yes (Hospitalization, Other)
  Sender: FDA-Public Use
  Company Number: IT-ABBOTT-10P-083-0630233-00

PATIENT
  Sex: Female

DRUGS (5)
  1. HUMIRA [Suspect]
     Indication: CROHN'S DISEASE
     Route: 058
  2. DELTACORTENE [Concomitant]
     Indication: ABDOMINAL PAIN
     Dosage: 40 MG WITH PROGRESSIVE TAPERING
     Dates: start: 20091116
  3. DELTACORTENE [Concomitant]
     Indication: ABDOMINAL MASS
  4. DELTACORTENE [Concomitant]
     Indication: RED BLOOD CELL SEDIMENTATION RATE INCREASED
  5. DELTACORTENE [Concomitant]
     Indication: C-REACTIVE PROTEIN INCREASED

REACTIONS (1)
  - CROHN'S DISEASE [None]
